FAERS Safety Report 4309455-4 (Version None)
Quarter: 2004Q1

REPORT INFORMATION
  Report Type: 
  Country: None (occurrence: None)
  Receive Date: 20040301
  Receipt Date: 20040217
  Transmission Date: 20041129
  Serious: Yes (Life-Threatening, Hospitalization)
  Sender: FDA-Public Use
  Company Number: 2003027729

PATIENT
  Age: 57 Year
  Sex: Female

DRUGS (11)
  1. ZYRTEC [Suspect]
     Indication: ILL-DEFINED DISORDER
     Dosage: UNKNOWN, ORAL
     Route: 048
     Dates: end: 20030619
  2. ANTISEPTICS AND DISINFECTANTS [Suspect]
     Indication: ILL-DEFINED DISORDER
     Dosage: UNKNOWN, ORAL
     Route: 048
     Dates: start: 20030618
  3. FLUVOXAMINE MALEATE [Concomitant]
  4. DIFENIDOL HYDROCHLORIDE (DIFENIDOL HYDROCHLORIDE) [Concomitant]
  5. PAROXETINE HCL [Concomitant]
  6. DISTIGMINE BROMIDE (DISTIGMINE BROMIDE) [Concomitant]
  7. NITRAZEPAM [Concomitant]
  8. FLUNITRAZEPAM (FLUNITRAZEPAM) [Concomitant]
  9. MAGNESIUM OXIDE (MAGNESIUM OXIDE) [Concomitant]
  10. BROMISOVAL (BROMISOVAL) [Concomitant]
  11. BARITAL (BARBITAL) [Concomitant]

REACTIONS (17)
  - ABDOMINAL PAIN UPPER [None]
  - ALANINE AMINOTRANSFERASE INCREASED [None]
  - ASPARTATE AMINOTRANSFERASE INCREASED [None]
  - BLOOD BILIRUBIN INCREASED [None]
  - BLOOD LACTATE DEHYDROGENASE INCREASED [None]
  - DIZZINESS [None]
  - DRUG INEFFECTIVE [None]
  - DRUG INTERACTION [None]
  - DYSPNOEA [None]
  - ELECTROCARDIOGRAM QT CORRECTED INTERVAL PROLONGED [None]
  - GAMMA-GLUTAMYLTRANSFERASE INCREASED [None]
  - HEPATIC FUNCTION ABNORMAL [None]
  - NAUSEA [None]
  - PO2 DECREASED [None]
  - PULMONARY CONGESTION [None]
  - TORSADE DE POINTES [None]
  - VENTRICULAR TACHYCARDIA [None]
